FAERS Safety Report 9059857 (Version 1)
Quarter: 2013Q1

REPORT INFORMATION
  Report Type: Spontaneous
  Country: US (occurrence: US)
  Receive Date: 20130212
  Receipt Date: 20130212
  Transmission Date: 20140127
  Serious: Yes (Other)
  Sender: FDA-Public Use
  Company Number: US-BAYER-2013-015112

PATIENT
  Age: 37 Year
  Sex: Female

DRUGS (4)
  1. YASMIN [Suspect]
     Indication: ENDOMETRIOSIS
  2. YASMIN [Suspect]
     Indication: CYST
  3. OCELLA [Suspect]
  4. IBUPIRAC [IBUPROFEN] [Concomitant]
     Indication: MIGRAINE

REACTIONS (1)
  - Deep vein thrombosis [None]
